FAERS Safety Report 4732569-1 (Version None)
Quarter: 2005Q3

REPORT INFORMATION
  Report Type: 
  Country: None (occurrence: None)
  Receive Date: 20050801
  Receipt Date: 20050801
  Transmission Date: 20060218
  Serious: Yes (Hospitalization)
  Sender: FDA-Public Use
  Company Number: None

PATIENT
  Age: 52 Year
  Sex: Female
  Weight: 111.3 kg

DRUGS (5)
  1. DULOXETINE   60 MG    LILLY [Suspect]
     Dosage: 60MG   ONCE DAILY   ORAL
     Route: 048
     Dates: start: 20041216, end: 20050405
  2. GABAPENTIN [Concomitant]
  3. TRIAMTERINE/HYDROCHLOROTHIAZIDE [Concomitant]
  4. LEVOTHYROXINE [Concomitant]
  5. TOPIRAMATE [Concomitant]

REACTIONS (1)
  - THROMBOCYTOPENIA [None]
